FAERS Safety Report 8325805 (Version 3)
Quarter: 2012Q4

REPORT INFORMATION
  Report Type: 
  Country: JP (occurrence: JP)
  Receive Date: 20120106
  Receipt Date: 20121002
  Transmission Date: 20130627
  Serious: Yes (Hospitalization)
  Sender: FDA-Public Use
  Company Number: JP-GLAXOSMITHKLINE-B0729377A

PATIENT
  Age: 29 Year
  Sex: Male

DRUGS (4)
  1. SERETIDE (50MCG/100MCG) [Suspect]
     Indication: ASTHMA
     Dosage: 100MCG Twice per day
     Route: 055
     Dates: start: 20100326, end: 20110623
  2. RITONAVIR [Suspect]
     Indication: HIV INFECTION
     Dosage: 1IUAX Per day
     Route: 048
     Dates: start: 20090107, end: 20110624
  3. TRUVADA [Concomitant]
     Indication: HIV INFECTION
     Dosage: 1IUAX Per day
     Route: 048
     Dates: start: 20090108
  4. REYATAZ [Concomitant]
     Indication: HIV INFECTION
     Dosage: 300MG Per day
     Route: 048
     Dates: start: 20090108, end: 20110821

REACTIONS (16)
  - Cushing^s syndrome [Recovering/Resolving]
  - Adrenal insufficiency [Recovering/Resolving]
  - Compression fracture [Recovering/Resolving]
  - Drug interaction [Unknown]
  - Drug level increased [Unknown]
  - Cushingoid [Unknown]
  - Acne [Unknown]
  - Osteoporosis [Unknown]
  - Back pain [Unknown]
  - Weight increased [Unknown]
  - Central obesity [Unknown]
  - Blood corticotrophin [Unknown]
  - Blood cortisol decreased [Unknown]
  - Bone pain [Unknown]
  - Libido decreased [Unknown]
  - Haemorrhage subcutaneous [Unknown]
